FAERS Safety Report 10191461 (Version 1)
Quarter: 2014Q2

REPORT INFORMATION
  Report Type: Spontaneous
  Country: BR (occurrence: BR)
  Receive Date: 20140523
  Receipt Date: 20140523
  Transmission Date: 20141212
  Serious: Yes (Hospitalization, Other)
  Sender: FDA-Public Use
  Company Number: BR-ELI_LILLY_AND_COMPANY-BR201405006417

PATIENT
  Sex: Female

DRUGS (8)
  1. HUMULIN N [Suspect]
     Indication: TYPE 1 DIABETES MELLITUS
     Dosage: 66 IU, EACH MORNING
     Route: 058
  2. HUMULIN N [Suspect]
     Dosage: 8 IU, EACH EVENING
     Route: 058
  3. OMEPRAZOL                          /00661201/ [Concomitant]
     Indication: PROPHYLAXIS
     Dosage: 20 MG, QD
     Route: 065
     Dates: start: 1994
  4. LASIX                              /00032601/ [Concomitant]
     Indication: BLOOD PRESSURE
     Dosage: 40 MG, QD
     Route: 065
  5. LASIX                              /00032601/ [Concomitant]
     Indication: PROPHYLAXIS
  6. GINKGO BILOBA [Concomitant]
     Indication: PRODUCT USED FOR UNKNOWN INDICATION
     Dosage: UNK, UNKNOWN
     Route: 065
  7. POLIVITAMINICO [Concomitant]
     Indication: PRODUCT USED FOR UNKNOWN INDICATION
     Dosage: UNK, UNKNOWN
     Route: 065
  8. CONCOR [Concomitant]
     Indication: CARDIAC DISORDER
     Dosage: 1.25 MG, QD
     Route: 065
     Dates: start: 2011

REACTIONS (7)
  - Cerebrovascular accident [Recovered/Resolved with Sequelae]
  - Blood glucose increased [Recovered/Resolved]
  - Thrombosis [Unknown]
  - Electroencephalogram abnormal [Unknown]
  - Computerised tomogram abnormal [Unknown]
  - Blood test abnormal [Unknown]
  - Hypertension [Unknown]
